FAERS Safety Report 7575441-4 (Version None)
Quarter: 2011Q2

REPORT INFORMATION
  Report Type: 
  Country: None (occurrence: None)
  Receive Date: 20110627
  Receipt Date: 20110620
  Transmission Date: 20111010
  Serious: Yes (Other)
  Sender: FDA-Public Use
  Company Number: US-ABBOTT-11P-163-0721667-00

PATIENT
  Sex: Female
  Weight: 62.652 kg

DRUGS (6)
  1. HUMIRA [Suspect]
     Indication: RHEUMATOID ARTHRITIS
     Route: 058
     Dates: start: 20090601, end: 20110404
  2. CELEXA [Concomitant]
     Indication: DEPRESSION
  3. FERROUS SULFATE TAB [Concomitant]
     Indication: PRODUCT USED FOR UNKNOWN INDICATION
  4. SYNTHROID [Concomitant]
     Indication: PRODUCT USED FOR UNKNOWN INDICATION
     Dates: start: 19700101
  5. HYDROCHLOROTHIAZIDE [Concomitant]
     Indication: PRODUCT USED FOR UNKNOWN INDICATION
     Dates: start: 20010101
  6. PREMPRO [Concomitant]
     Indication: PRODUCT USED FOR UNKNOWN INDICATION
     Dates: end: 20110504

REACTIONS (9)
  - ABDOMINAL PAIN UPPER [None]
  - OVARIAN CANCER [None]
  - PLEURAL EFFUSION [None]
  - DYSPNOEA [None]
  - MUSCLE SPASMS [None]
  - RASH PRURITIC [None]
  - RASH ERYTHEMATOUS [None]
  - UTERINE NEOPLASM [None]
  - METASTASES TO THORAX [None]
